FAERS Safety Report 21438507 (Version 1)
Quarter: 2022Q4

REPORT INFORMATION
  Report Type: Spontaneous
  Country: DE (occurrence: DE)
  Receive Date: 20221011
  Receipt Date: 20221011
  Transmission Date: 20230113
  Serious: Yes (Other)
  Sender: FDA-Public Use
  Company Number: DE-ALKEM LABORATORIES LIMITED-DE-ALKEM-2022-10584

PATIENT
  Sex: Female

DRUGS (10)
  1. FINGOLIMOD [Suspect]
     Active Substance: FINGOLIMOD
     Indication: Multiple sclerosis
     Dosage: 0.5 MILLIGRAM, QD (EVERY 1 DAY) CAPSULE, HARD
     Route: 048
     Dates: start: 20160616
  2. RAMIPRIL [Suspect]
     Active Substance: RAMIPRIL
     Indication: Hypertension
     Dosage: 2.5 MILLIGRAM, QD (EVERY 1 DAY)
     Route: 065
     Dates: start: 20160822, end: 20160904
  3. RAMIPRIL [Suspect]
     Active Substance: RAMIPRIL
     Dosage: 5 MILLIGRAM, QD (EVERY 1 DAY)
     Route: 065
     Dates: start: 20160905, end: 20161206
  4. RAMIPRIL [Suspect]
     Active Substance: RAMIPRIL
     Dosage: 10 MILLIGRAM, QD, (EVERY 1 DAY)
     Route: 065
     Dates: start: 20161207, end: 20170401
  5. Kalinor [Concomitant]
     Indication: Hypertension
     Dosage: 1.56 GRAM, QD (EVERY 1 DAY)
     Route: 065
     Dates: start: 20161208
  6. MIRTAZAPINE [Concomitant]
     Active Substance: MIRTAZAPINE
     Indication: Sleep disorder
     Dosage: 15 MILLIGRAM
     Route: 065
  7. RAMIPRIL [Concomitant]
     Active Substance: RAMIPRIL
     Indication: Hypertension
     Dosage: 0.5 DOSAGE FORM, QD
     Route: 065
     Dates: start: 20160822, end: 20160904
  8. RAMIPRIL [Concomitant]
     Active Substance: RAMIPRIL
     Dosage: 1 DOSAGE FORM, QD
     Route: 065
     Dates: start: 20160905, end: 20161206
  9. RAMIPRIL [Concomitant]
     Active Substance: RAMIPRIL
     Dosage: 10 MILLIGRAM
     Route: 065
     Dates: start: 20161207, end: 20170401
  10. AMLODIPINE BESYLATE\PERINDOPRIL ARGININE [Concomitant]
     Active Substance: AMLODIPINE BESYLATE\PERINDOPRIL ARGININE
     Indication: Hypertension
     Dosage: UNK, QD
     Route: 065
     Dates: start: 20170401

REACTIONS (2)
  - Hypokalaemia [Unknown]
  - Central nervous system lesion [Unknown]
